FAERS Safety Report 5739655-8 (Version None)
Quarter: 2008Q2

REPORT INFORMATION
  Report Type: 
  Country: None (occurrence: None)
  Receive Date: 20080513
  Receipt Date: 20080502
  Transmission Date: 20081010
  Serious: Yes (Hospitalization)
  Sender: FDA-Public Use
  Company Number: 2008VX000888

PATIENT
  Age: 66 Year
  Sex: Female

DRUGS (10)
  1. PERMAX [Suspect]
     Indication: PARKINSON'S DISEASE
     Dosage: 750 UG; QD; PO, 1250 UG; QD; PO
     Route: 048
     Dates: end: 20071001
  2. SINEMET [Suspect]
  3. DOPS (DROXIDOPA) [Suspect]
  4. PRAVASTATIN [Suspect]
  5. FLAVOXATE HYDROCHLORIDE (FLAVOXATE HYDROCHLORIDE) [Suspect]
  6. PRAMIPEXOLE DIHYDROCHLORIDE [Suspect]
  7. SYMMETREL [Suspect]
  8. PURSENNID (SENNA LEAF) [Suspect]
  9. ZONISAMIDE [Suspect]
  10. MUCOSTA (REBAMIPIDE) [Suspect]

REACTIONS (2)
  - ABASIA [None]
  - ERYTHROMELALGIA [None]
